FAERS Safety Report 4346083-9 (Version None)
Quarter: 2004Q2

REPORT INFORMATION
  Report Type: 
  Country: None (occurrence: None)
  Receive Date: 20040420
  Receipt Date: 20030207
  Transmission Date: 20050107
  Serious: Yes (Death, Hospitalization)
  Sender: FDA-Public Use
  Company Number: THQ2004A00368

PATIENT
  Age: 69 Year
  Sex: Female

DRUGS (9)
  1. PIOGLITAZONE HCL [Suspect]
     Indication: DIABETES MELLITUS NON-INSULIN-DEPENDENT
     Dosage: PER ORAL
     Route: 048
     Dates: start: 20010201, end: 20030205
  2. ISOSORBIDE [Concomitant]
  3. MONONITRATE (ISOSORBIDE MONONITRATE) [Concomitant]
  4. ASPIRIN [Concomitant]
  5. LOVASTATIN [Concomitant]
  6. OMEPRAZOLE [Concomitant]
  7. THYROXIN (LEVOTHYROXINE SODIUM) [Concomitant]
  8. METOCLOPRAMIDE [Concomitant]
  9. DICLOFENAC SODIUM [Concomitant]

REACTIONS (2)
  - BRAIN NEOPLASM [None]
  - DIZZINESS [None]
